FAERS Safety Report 9045540 (Version 1)
Quarter: 2013Q1

REPORT INFORMATION
  Report Type: Spontaneous
  Country: US (occurrence: US)
  Receive Date: 20130131
  Receipt Date: 20130131
  Transmission Date: 20140127
  Serious: No
  Sender: FDA-Public Use
  Company Number: US-ABBOTT-12P-163-1006378-00

PATIENT
  Sex: 0
  Weight: 65.38 kg

DRUGS (14)
  1. HUMIRA [Suspect]
     Indication: CROHN^S DISEASE
     Dates: start: 201209
  2. PENTASA [Concomitant]
     Indication: PRODUCT USED FOR UNKNOWN INDICATION
  3. TOPROL [Concomitant]
     Indication: MITRAL VALVE PROLAPSE
  4. COUMADIN [Concomitant]
     Indication: IMMUNE SYSTEM DISORDER
  5. SAVELLA [Concomitant]
     Indication: FIBROMYALGIA
  6. GABAPENTIN [Concomitant]
     Indication: NEURITIS
  7. LUMIGEN [Concomitant]
     Indication: HYPERTENSION
  8. RESASIS [Concomitant]
     Indication: SJOGREN^S SYNDROME
  9. B COMPLEX [Concomitant]
     Indication: PRODUCT USED FOR UNKNOWN INDICATION
  10. VIT D [Concomitant]
     Indication: PRODUCT USED FOR UNKNOWN INDICATION
  11. TURMERIC [Concomitant]
     Indication: PRODUCT USED FOR UNKNOWN INDICATION
  12. KRILL OIL [Concomitant]
     Indication: PRODUCT USED FOR UNKNOWN INDICATION
  13. MAGNESIUM [Concomitant]
     Indication: PRODUCT USED FOR UNKNOWN INDICATION
  14. FLAX SEED OIL [Concomitant]
     Indication: PRODUCT USED FOR UNKNOWN INDICATION

REACTIONS (4)
  - Incorrect dose administered [Unknown]
  - Arthritis [Recovering/Resolving]
  - Device malfunction [Unknown]
  - Injection site mass [Recovering/Resolving]
